FAERS Safety Report 4314222-1 (Version None)
Quarter: 2004Q1

REPORT INFORMATION
  Report Type: 
  Country: None (occurrence: None)
  Receive Date: 20040304
  Receipt Date: 20031217
  Transmission Date: 20041129
  Serious: No
  Sender: FDA-Public Use
  Company Number: 203866

PATIENT
  Age: 15 Year
  Sex: Female
  Weight: 42 kg

DRUGS (3)
  1. NUTROPIN AQ [Suspect]
     Indication: GROWTH HORMONE DEFICIENCY
     Dosage: 2.8 MG, QD, SUBCUTANEOUS
     Route: 058
     Dates: start: 19980403
  2. FLOVENT [Concomitant]
  3. PREMARIN [Concomitant]

REACTIONS (1)
  - SCOLIOSIS [None]
